FAERS Safety Report 23571820 (Version 4)
Quarter: 2024Q1

REPORT INFORMATION
  Report Type: Spontaneous
  Country: EG (occurrence: EG)
  Receive Date: 20240227
  Receipt Date: 20240308
  Transmission Date: 20240409
  Serious: Yes (Death, Other)
  Sender: FDA-Public Use
  Company Number: EG-ABBVIE-5656083

PATIENT

DRUGS (1)
  1. SURVANTA [Suspect]
     Active Substance: BERACTANT
     Indication: Acute respiratory distress syndrome
     Dosage: 25 MG/ML SUSPENSION FOR INJECTION (2 VIALS)
     Route: 039
     Dates: start: 20231230

REACTIONS (2)
  - Respiratory failure [Fatal]
  - Condition aggravated [Fatal]

NARRATIVE: CASE EVENT DATE: 20240110
